FAERS Safety Report 9099164 (Version 3)
Quarter: 2013Q3

REPORT INFORMATION
  Report Type: Spontaneous
  Country: US (occurrence: US)
  Receive Date: 20130213
  Receipt Date: 20130806
  Transmission Date: 20140515
  Serious: Yes (Other)
  Sender: FDA-Public Use
  Company Number: US-BAYER-2013-017465

PATIENT
  Age: 64 Year
  Sex: Male

DRUGS (6)
  1. AVELOX [Suspect]
     Indication: SINUSITIS
     Dosage: 400 MG, QD
     Dates: start: 20110726, end: 20110815
  2. METOPROLOL [Concomitant]
  3. ACETYLSALICYLIC ACID [Concomitant]
  4. LISINOPRIL [Concomitant]
  5. NIACIN [Concomitant]
  6. FISH OIL [Concomitant]

REACTIONS (18)
  - Uveitis [None]
  - Blindness transient [None]
  - Pigment dispersion syndrome [None]
  - Iris hypopigmentation [None]
  - Open angle glaucoma [None]
  - Visual field defect [None]
  - Eye pain [None]
  - Intraocular pressure increased [None]
  - Cataract [None]
  - Lens disorder [None]
  - Incorrect drug administration duration [None]
  - Injury [None]
  - Photophobia [None]
  - Emotional distress [None]
  - Anhedonia [None]
  - Quality of life decreased [None]
  - Pain [None]
  - Eye injury [None]
